FAERS Safety Report 13483613 (Version 1)
Quarter: 2017Q2

REPORT INFORMATION
  Report Type: Spontaneous
  Country: US (occurrence: US)
  Receive Date: 20170426
  Receipt Date: 20170426
  Transmission Date: 20170830
  Serious: No
  Sender: FDA-Public Use
  Company Number: US-JNJFOC-20170417683

PATIENT
  Sex: Female

DRUGS (2)
  1. MOTRIN [Suspect]
     Active Substance: IBUPROFEN
     Indication: INFLAMMATION
     Route: 065
  2. MOTRIN [Suspect]
     Active Substance: IBUPROFEN
     Route: 065

REACTIONS (2)
  - Abdominal pain upper [Unknown]
  - Drug ineffective for unapproved indication [Unknown]
